FAERS Safety Report 8216078-3 (Version None)
Quarter: 2012Q1

REPORT INFORMATION
  Report Type: 
  Country: None (occurrence: None)
  Receive Date: 20120316
  Receipt Date: 20120309
  Transmission Date: 20120608
  Serious: No
  Sender: FDA-Public Use
  Company Number: JP-ABBOTT-12P-087-0913046-00

PATIENT
  Sex: Female
  Weight: 48 kg

DRUGS (41)
  1. LACTOMIN [Concomitant]
     Indication: CROHN'S DISEASE
     Route: 048
     Dates: start: 20110419, end: 20110803
  2. SOLITA-T NO.3 [Concomitant]
     Indication: POSTOPERATIVE CARE
     Dates: start: 20110428, end: 20110509
  3. CANDESARTAN CILEXETIL [Concomitant]
     Indication: SYSTEMIC LUPUS ERYTHEMATOSUS
     Route: 048
     Dates: start: 20110725
  4. AZULENE [Concomitant]
     Indication: DERMATITIS
     Route: 061
     Dates: start: 20110330, end: 20110404
  5. ANTIBIOTICS-RESISTANT LACTIC ACID BACTERIAE [Concomitant]
     Indication: DRUG THERAPY
     Route: 048
     Dates: start: 20110507, end: 20110508
  6. FERRIC OXIDE SACCHARATED [Concomitant]
     Indication: ANAEMIA
     Dates: start: 20110507, end: 20110519
  7. ASCORBIC ACID [Concomitant]
     Indication: POSTOPERATIVE CARE
     Dates: start: 20110507, end: 20110515
  8. SENNOSIDE [Concomitant]
     Indication: PREOPERATIVE CARE
     Route: 048
     Dates: start: 20110427, end: 20110427
  9. HUMIRA [Suspect]
     Route: 058
     Dates: start: 20110626, end: 20110906
  10. OXETHAZAINE [Concomitant]
     Indication: ABDOMINAL PAIN UPPER
     Route: 048
     Dates: start: 20110509, end: 20110509
  11. PREDNISOLONE [Concomitant]
     Indication: SYSTEMIC LUPUS ERYTHEMATOSUS
     Route: 048
  12. KETOPROFEN [Concomitant]
     Indication: POSTOPERATIVE CARE
     Route: 061
     Dates: start: 20110506, end: 20110508
  13. LOPERAMIDE HYDROCHLORIDE [Concomitant]
     Indication: DIARRHOEA
     Dosage: DAILY
     Route: 048
     Dates: start: 20110510, end: 20110608
  14. MALTOSE/LACTATED RINGER'S SOLUTION [Concomitant]
     Indication: PREOPERATIVE CARE
     Dates: start: 20110428, end: 20110501
  15. FAMOTIDINE [Concomitant]
     Indication: POSTOPERATIVE CARE
     Dates: start: 20110507, end: 20110516
  16. TACROLIMUS [Concomitant]
     Indication: SYSTEMIC LUPUS ERYTHEMATOSUS
     Route: 048
  17. ETIZOLAM [Concomitant]
     Indication: INSOMNIA
     Route: 048
     Dates: start: 20110506, end: 20110509
  18. HUMIRA [Suspect]
     Route: 058
     Dates: start: 20110511, end: 20110511
  19. DEXTROSE [Concomitant]
     Indication: ANAEMIA
     Dates: start: 20110507, end: 20110519
  20. ATENOLOL [Concomitant]
     Indication: SYSTEMIC LUPUS ERYTHEMATOSUS
     Route: 048
  21. SCOPOLAMINE BUTYLBROMIDE [Concomitant]
     Indication: ABDOMINAL PAIN
     Dates: start: 20110509, end: 20110509
  22. FAMOTIDINE [Concomitant]
     Indication: ABDOMINAL PAIN UPPER
     Route: 048
     Dates: start: 20110509, end: 20110608
  23. DIPYRIDAMOLE [Concomitant]
     Indication: SYSTEMIC LUPUS ERYTHEMATOSUS
     Route: 048
  24. MINOCYCLINE HYDROCHLORIDE [Concomitant]
     Indication: PRODUCT USED FOR UNKNOWN INDICATION
     Route: 048
     Dates: start: 20110330, end: 20110504
  25. SODIUM BICARBONATE/ANYHYDROUS MONOBASIC SODIUM PHOSPHATE [Concomitant]
     Indication: PREOPERATIVE CARE
     Route: 054
     Dates: start: 20110428, end: 20110428
  26. TRIBENOSIDE/LIDOCAINE [Concomitant]
     Indication: PRODUCT USED FOR UNKNOWN INDICATION
     Route: 061
     Dates: start: 20110330, end: 20110906
  27. FERROUS FUMARATE [Concomitant]
     Indication: ANAEMIA
     Dosage: DAILY
     Route: 048
     Dates: start: 20110518, end: 20110523
  28. SALINE [Concomitant]
     Indication: POSTOPERATIVE CARE
     Dates: start: 20110508, end: 20110509
  29. ALFACALCIDOL [Concomitant]
     Indication: SYSTEMIC LUPUS ERYTHEMATOSUS
     Route: 048
  30. METOCLOPRAMIDE [Concomitant]
     Indication: NAUSEA
     Route: 048
     Dates: start: 20110507, end: 20110508
  31. MAGNESIUM CITRATE [Concomitant]
     Indication: PREOPERATIVE CARE
     Route: 048
     Dates: start: 20110427, end: 20110427
  32. HUMIRA [Suspect]
     Indication: CROHN'S DISEASE
     Route: 058
     Dates: start: 20110427, end: 20110427
  33. PENTASA [Suspect]
     Indication: CROHN'S DISEASE
     Route: 048
     Dates: start: 20110419, end: 20110803
  34. SODIUM BICARBONATE/ANHYDROUS MONOBASIC SODIUM PHOSPHATE [Concomitant]
     Indication: CONSTIPATION
     Route: 061
     Dates: start: 20110405, end: 20110508
  35. LOXOPROFEN SODIUM HYDRATE [Concomitant]
     Indication: POSTOPERATIVE CARE
     Dosage: TOTAL 660 MG
     Route: 048
     Dates: start: 20110430, end: 20110430
  36. CEFMETAZOLE SODIUM [Concomitant]
     Indication: POSTOPERATIVE CARE
     Dates: start: 20110428, end: 20110501
  37. CARBAZOCHROME SODIUM SULFONATE HYDRATE [Concomitant]
     Indication: POSTOPERATIVE CARE
     Dates: start: 20110428, end: 20110501
  38. TRANEXAMIC ACID [Concomitant]
     Indication: POSTOPERATIVE CARE
     Dates: start: 20110428, end: 20110501
  39. VITAMIN B COMPLEX CAP [Concomitant]
     Indication: POSTOPERATIVE CARE
     Dates: start: 20110428, end: 20110515
  40. BROTIZOLAM [Concomitant]
     Indication: PREOPERATIVE CARE
     Route: 048
     Dates: start: 20110427, end: 20110427
  41. DIAZEPAM [Concomitant]
     Indication: PREOPERATIVE CARE
     Route: 048
     Dates: start: 20110428, end: 20110428

REACTIONS (6)
  - SKIN EXFOLIATION [None]
  - ALOPECIA [None]
  - PAPULE [None]
  - RENAL IMPAIRMENT [None]
  - PRURITUS [None]
  - RASH [None]
